FAERS Safety Report 8418713 (Version 2)
Quarter: 2013Q3

REPORT INFORMATION
  Report Type: Spontaneous
  Country: DK (occurrence: DK)
  Receive Date: 20120221
  Receipt Date: 20130715
  Transmission Date: 20140515
  Serious: Yes (Hospitalization)
  Sender: FDA-Public Use
  Company Number: DK-GLAXOSMITHKLINE-B0781995A

PATIENT
  Age: 74 Year
  Sex: Male

DRUGS (3)
  1. IMIGRAN [Suspect]
     Indication: HEADACHE
     Route: 065
     Dates: start: 20110901, end: 20110907
  2. METFORMIN [Concomitant]
  3. SIMVASTATIN [Concomitant]

REACTIONS (4)
  - Hypertension [Recovered/Resolved]
  - Nausea [Recovered/Resolved]
  - Dizziness [Recovered/Resolved]
  - Headache [Recovered/Resolved]
